FAERS Safety Report 5340081-4 (Version None)
Quarter: 2007Q2

REPORT INFORMATION
  Report Type: 
  Country: None (occurrence: None)
  Receive Date: 20070525
  Receipt Date: 20070525
  Transmission Date: 20071010
  Serious: Yes (Hospitalization)
  Sender: FDA-Public Use
  Company Number: None

PATIENT
  Age: 59 Year
  Sex: Female
  Weight: 72.5755 kg

DRUGS (10)
  1. WARFARIN SODIUM [Suspect]
     Indication: DEEP VEIN THROMBOSIS
     Dosage: 5MG, 5MG, 2.5MG 10/1 - 10/3 PO
     Route: 048
     Dates: start: 20061001, end: 20061003
  2. WARFARIN SODIUM [Suspect]
     Indication: PULMONARY EMBOLISM
     Dosage: 5MG, 5MG, 2.5MG 10/1 - 10/3 PO
     Route: 048
     Dates: start: 20061001, end: 20061003
  3. FLAGYL [Suspect]
     Indication: SURGERY
     Dosage: 500MG Q8H IV
     Route: 042
     Dates: start: 20060930, end: 20061006
  4. LOVENOX [Concomitant]
  5. LORAZEPAM [Concomitant]
  6. PROMETAZINE [Concomitant]
  7. COUMADIN [Concomitant]
  8. PEPCID [Concomitant]
  9. LEVAQUIN [Concomitant]
  10. FLAGYL [Concomitant]

REACTIONS (2)
  - ANASTOMOTIC HAEMORRHAGE [None]
  - POST PROCEDURAL HAEMORRHAGE [None]
